FAERS Safety Report 10064866 (Version 1)
Quarter: 2014Q2

REPORT INFORMATION
  Report Type: Spontaneous
  Country: US (occurrence: None)
  Receive Date: 20140404
  Receipt Date: 20140404
  Transmission Date: 20141212
  Serious: Yes (Hospitalization)
  Sender: FDA-Public Use
  Company Number: 2014-US-003945

PATIENT
  Age: 23 Year
  Sex: Male
  Weight: 79.38 kg

DRUGS (11)
  1. FAZACLO ODT [Suspect]
     Indication: BIPOLAR DISORDER
     Route: 048
     Dates: start: 20140329, end: 20140330
  2. FAZACLO ODT [Suspect]
     Indication: SCHIZOAFFECTIVE DISORDER
     Route: 048
     Dates: start: 20140329, end: 20140330
  3. FAZACLO ODT [Suspect]
     Indication: POST-TRAUMATIC STRESS DISORDER
     Route: 048
     Dates: start: 20140329, end: 20140330
  4. VISATRIL (HYDROXYZINE HYDROCHLORIDE) [Concomitant]
  5. LITHIUM CARBONATE (LITHIUM CARBONATE) [Concomitant]
  6. TRILLEPTAL (OXCARBAZEPINE) [Concomitant]
  7. TOPAMAX (TOPIRAMATE) [Concomitant]
  8. PRAZOSIN HCL (PRAZOSIN HYDROCHLORIDE) [Concomitant]
  9. SONATA (ZALEPLON) [Concomitant]
  10. INDERAL (PROPRANOLOL HYDROCHLORIDE) [Concomitant]
  11. ATIVAN (LORAZEPAM) [Concomitant]

REACTIONS (4)
  - Psychotic disorder [None]
  - Oedema mouth [None]
  - Oral mucosal erythema [None]
  - Swollen tongue [None]
